FAERS Safety Report 15355617 (Version 2)
Quarter: 2018Q4

REPORT INFORMATION
  Report Type: Spontaneous
  Country: US (occurrence: US)
  Receive Date: 20180906
  Receipt Date: 20181227
  Transmission Date: 20190204
  Serious: Yes (Death, Hospitalization, Other)
  Sender: FDA-Public Use
  Company Number: US-009507513-1809USA001408

PATIENT
  Sex: Male

DRUGS (3)
  1. SIMVASTATIN TABLETS, USP [Concomitant]
     Active Substance: SIMVASTATIN
     Indication: BLOOD CHOLESTEROL INCREASED
  2. ATENOLOL. [Concomitant]
     Active Substance: ATENOLOL
     Indication: HYPERTENSION
     Dosage: UNK
     Dates: start: 2007, end: 20180104
  3. JANUVIA [Suspect]
     Active Substance: SITAGLIPTIN PHOSPHATE
     Dosage: 100 MILLIGRAM, QD
     Route: 048
     Dates: start: 20111028, end: 20171010

REACTIONS (25)
  - Bile duct stenosis [Unknown]
  - Biliary neoplasm [Unknown]
  - Coronary artery disease [Unknown]
  - Biliary tract disorder [Unknown]
  - Vertigo [Unknown]
  - Jaundice [Unknown]
  - Vitamin B12 deficiency [Unknown]
  - Diabetic neuropathy [Unknown]
  - Pancreatic cyst [Unknown]
  - Type 1 diabetes mellitus [Unknown]
  - Inguinal hernia [Unknown]
  - Death [Fatal]
  - Adenocarcinoma pancreas [Unknown]
  - Proteinuria [Unknown]
  - Hyperlipidaemia [Unknown]
  - Type 2 diabetes mellitus [Unknown]
  - Arteriosclerosis coronary artery [Unknown]
  - Helicobacter infection [Unknown]
  - Pancreatic disorder [Unknown]
  - Hypertension [Unknown]
  - Pancreatitis [Unknown]
  - Renal cyst [Unknown]
  - Pericardial effusion [Unknown]
  - Peripheral vascular disorder [Unknown]
  - Faecaloma [Unknown]

NARRATIVE: CASE EVENT DATE: 20171026
